FAERS Safety Report 8313962-7 (Version None)
Quarter: 2012Q2

REPORT INFORMATION
  Report Type: 
  Country: None (occurrence: None)
  Receive Date: 20120426
  Receipt Date: 20120418
  Transmission Date: 20120825
  Serious: Yes (Hospitalization, Other)
  Sender: FDA-Public Use
  Company Number: US-BAYER-2011-114345

PATIENT
  Age: 49 Year
  Sex: Female
  Weight: 63.492 kg

DRUGS (14)
  1. DROSPIRENONE AND ETHINYL ESTRADIOL [Suspect]
     Indication: CONTRACEPTION
     Dosage: UNK
     Dates: start: 20080701, end: 20100101
  2. CELEXA [Concomitant]
     Route: 048
  3. ACTONEL [Concomitant]
     Route: 048
  4. PROCARDIA [Concomitant]
     Indication: SCLERODERMA
     Dosage: UNK
     Dates: start: 20050501
  5. TYLENOL (CAPLET) [Concomitant]
     Indication: HEADACHE
     Dosage: 2 PILLS
     Route: 048
  6. OMEPRAZOLE [Concomitant]
     Indication: SCLERODERMA
     Dosage: UNK
     Route: 048
     Dates: start: 20050101
  7. VITAMIN D [Concomitant]
     Indication: OSTEOPOROSIS
     Dosage: 1000 IU, QD
     Route: 048
  8. PLAQUENIL [Concomitant]
     Indication: SCLERODERMA
     Dosage: UNK
     Route: 048
     Dates: start: 20050101
  9. MELOXICAM [Concomitant]
     Indication: SCLERODERMA
     Dosage: UNK
     Route: 048
     Dates: start: 20071001
  10. BONIVA [Concomitant]
     Route: 048
  11. YASMIN [Suspect]
     Indication: CONTRACEPTION
     Dosage: UNK
     Dates: start: 20060401, end: 20080701
  12. YAZ [Suspect]
     Indication: CONTRACEPTION
     Dosage: UNK
     Dates: start: 20100101, end: 20100331
  13. IBUPROFEN (ADVIL) [Concomitant]
     Indication: PAIN
     Dosage: 2 PILLS
     Route: 048
  14. PREVACID [Concomitant]
     Route: 048

REACTIONS (6)
  - ISCHAEMIC CEREBRAL INFARCTION [None]
  - HEMIPLEGIA [None]
  - EMOTIONAL DISTRESS [None]
  - GENERAL PHYSICAL HEALTH DETERIORATION [None]
  - PAIN [None]
  - ANXIETY [None]
